FAERS Safety Report 16542428 (Version 1)
Quarter: 2019Q3

REPORT INFORMATION
  Report Type: Spontaneous
  Country: PH (occurrence: PH)
  Receive Date: 20190708
  Receipt Date: 20190708
  Transmission Date: 20191004
  Serious: Yes (Other)
  Sender: FDA-Public Use
  Company Number: PH-ABBVIE-19K-128-2845099-00

PATIENT
  Age: 41 Year
  Sex: Female

DRUGS (1)
  1. SEVORANE [Suspect]
     Active Substance: SEVOFLURANE
     Indication: PRODUCT USED FOR UNKNOWN INDICATION
     Dosage: USING TEC 7 VAPORIZER
     Route: 055

REACTIONS (1)
  - Analgesic drug level decreased [Unknown]

NARRATIVE: CASE EVENT DATE: 20190701
